FAERS Safety Report 24217356 (Version 1)
Quarter: 2024Q3

REPORT INFORMATION
  Report Type: Spontaneous
  Country: BY (occurrence: BY)
  Receive Date: 20240816
  Receipt Date: 20240816
  Transmission Date: 20241016
  Serious: Yes (Death)
  Sender: BAYER
  Company Number: BY-BAYER-2024A116927

PATIENT
  Age: 43 Year
  Sex: Female

DRUGS (1)
  1. DIENOGEST\ESTRADIOL VALERATE [Suspect]
     Active Substance: DIENOGEST\ESTRADIOL VALERATE
     Indication: Heavy menstrual bleeding
     Dosage: 1 DF, QD
     Route: 048
     Dates: start: 202404, end: 202408

REACTIONS (1)
  - Uterine haemorrhage [Fatal]

NARRATIVE: CASE EVENT DATE: 20240101
